FAERS Safety Report 9290692 (Version 1)
Quarter: 2013Q2

REPORT INFORMATION
  Report Type: Spontaneous
  Country: US (occurrence: None)
  Receive Date: 20130514
  Receipt Date: 20130514
  Transmission Date: 20140414
  Serious: Yes (Hospitalization, Other)
  Sender: FDA-Public Use
  Company Number: None

PATIENT
  Age: 22 Year
  Sex: Female
  Weight: 63.5 kg

DRUGS (1)
  1. DEPO-PROVERA [Suspect]

REACTIONS (8)
  - Crying [None]
  - Sleep disorder [None]
  - Mood altered [None]
  - Depression [None]
  - Suicidal ideation [None]
  - Anxiety [None]
  - Intentional self-injury [None]
  - Insomnia [None]
